FAERS Safety Report 4652477-4 (Version None)
Quarter: 2005Q2

REPORT INFORMATION
  Report Type: 
  Country: None (occurrence: None)
  Receive Date: 20050502
  Receipt Date: 20050415
  Transmission Date: 20051028
  Serious: Yes (Hospitalization)
  Sender: FDA-Public Use
  Company Number: ATO-05-0131

PATIENT
  Age: 74 Year
  Sex: Male

DRUGS (2)
  1. TRISENOX [Suspect]
     Indication: MYELODYSPLASTIC SYNDROME
     Dosage: 0.25 MG/KG/DAY (0.25 MG/KG, DAILY), IVI
     Route: 042
     Dates: start: 20050323, end: 20050412
  2. ARA-C [Suspect]
     Indication: MYELODYSPLASTIC SYNDROME
     Dosage: 10 MG/M2 (10 MG/M2, BID), IVI
     Route: 042
     Dates: start: 20050323, end: 20050412

REACTIONS (1)
  - ACUTE MYOCARDIAL INFARCTION [None]
